FAERS Safety Report 17978069 (Version 1)
Quarter: 2020Q3

REPORT INFORMATION
  Report Type: Spontaneous
  Country: IT (occurrence: IT)
  Receive Date: 20200703
  Receipt Date: 20200703
  Transmission Date: 20201103
  Serious: Yes (Death, Hospitalization)
  Sender: FDA-Public Use
  Company Number: IT-ROCHE-2634128

PATIENT
  Sex: Female

DRUGS (8)
  1. RITUXIMAB. [Suspect]
     Active Substance: RITUXIMAB
     Dosage: BEFORE CYCLE 1 OF CHEMOTHERAPY
     Route: 065
     Dates: start: 2015
  2. ENDOXAN [CYCLOPHOSPHAMIDE] [Suspect]
     Active Substance: CYCLOPHOSPHAMIDE
     Indication: B-CELL LYMPHOMA STAGE IV
     Dosage: CHOP; CYCLICAL
     Route: 065
     Dates: start: 2015, end: 201603
  3. RITUXIMAB. [Suspect]
     Active Substance: RITUXIMAB
     Dosage: BEFORE CYCLE 5 OF CHEMOTHERAPY
     Route: 065
  4. DOXORUBICIN [Suspect]
     Active Substance: DOXORUBICIN
     Indication: B-CELL LYMPHOMA STAGE IV
     Dosage: CHOP; CYCLICAL
     Route: 065
     Dates: start: 2015, end: 201603
  5. VINCRISTINE [Suspect]
     Active Substance: VINCRISTINE
     Indication: B-CELL LYMPHOMA STAGE IV
     Dosage: CHOP; CYCLICAL
     Route: 065
     Dates: start: 2015, end: 201603
  6. RITUXIMAB. [Suspect]
     Active Substance: RITUXIMAB
     Dosage: BEFORE CYCLE 2 OF CHEMOTHERAPY
     Route: 065
  7. PREDNISONE. [Suspect]
     Active Substance: PREDNISONE
     Indication: B-CELL LYMPHOMA STAGE IV
     Dosage: CHOP; CYCLICAL
     Route: 065
     Dates: start: 2015, end: 201603
  8. RITUXIMAB. [Suspect]
     Active Substance: RITUXIMAB
     Indication: B-CELL LYMPHOMA STAGE IV
     Dosage: BEFORE CYCLE 3 OF CHEMOTHERAPY
     Route: 065

REACTIONS (1)
  - Progressive multifocal leukoencephalopathy [Fatal]

NARRATIVE: CASE EVENT DATE: 201607
